FAERS Safety Report 6962322-X (Version None)
Quarter: 2010Q3

REPORT INFORMATION
  Report Type: 
  Country: None (occurrence: None)
  Receive Date: 20100902
  Receipt Date: 20100826
  Transmission Date: 20110219
  Serious: Yes (Other)
  Sender: FDA-Public Use
  Company Number: US-ASTRAZENECA-2007UW21667

PATIENT
  Age: 560 Month
  Sex: Female
  Weight: 168.3 kg

DRUGS (17)
  1. SEROQUEL [Suspect]
     Indication: ANXIETY
     Dosage: 25 MG TO 300 MG
     Route: 048
     Dates: start: 20030601, end: 20060207
  2. SEROQUEL [Suspect]
     Indication: DEPRESSION
     Dosage: 25 MG TO 300 MG
     Route: 048
     Dates: start: 20030601, end: 20060207
  3. SEROQUEL [Suspect]
     Indication: INSOMNIA
     Dosage: 25 MG TO 300 MG
     Route: 048
     Dates: start: 20030601, end: 20060207
  4. SEROQUEL [Suspect]
     Dosage: 100 MG TO 300 MG
     Route: 048
     Dates: start: 20040101, end: 20061101
  5. SEROQUEL [Suspect]
     Dosage: 100 MG TO 300 MG
     Route: 048
     Dates: start: 20040101, end: 20061101
  6. SEROQUEL [Suspect]
     Dosage: 100 MG TO 300 MG
     Route: 048
     Dates: start: 20040101, end: 20061101
  7. SEROQUEL [Suspect]
     Dosage: 50-400 MG
     Route: 048
     Dates: start: 20050323
  8. SEROQUEL [Suspect]
     Dosage: 50-400 MG
     Route: 048
     Dates: start: 20050323
  9. SEROQUEL [Suspect]
     Dosage: 50-400 MG
     Route: 048
     Dates: start: 20050323
  10. PROZAC [Concomitant]
     Indication: DEPRESSION
     Dosage: 30 MG TO 40 MG
     Route: 065
  11. KLONOPIN [Concomitant]
     Route: 065
  12. TOPAMAX [Concomitant]
     Route: 065
  13. PROVIGIL [Concomitant]
     Dosage: 200 MG TO 300 MG
     Route: 065
  14. STRATTERA [Concomitant]
     Route: 065
  15. LIPITOR [Concomitant]
     Route: 065
  16. LUNESTA [Concomitant]
     Route: 065
  17. ELAVIL [Concomitant]
     Dosage: 25 MG TO 125 MG
     Route: 065

REACTIONS (15)
  - ABNORMAL DREAMS [None]
  - ADVERSE DRUG REACTION [None]
  - BLOOD CHOLESTEROL INCREASED [None]
  - BLOOD TRIGLYCERIDES INCREASED [None]
  - DUODENAL ULCER [None]
  - DYSPNOEA EXERTIONAL [None]
  - HYPERCHOLESTEROLAEMIA [None]
  - HYPERGLYCAEMIA [None]
  - HYPERLIPIDAEMIA [None]
  - MOBILITY DECREASED [None]
  - MYOCARDIAL INFARCTION [None]
  - NEPHROLITHIASIS [None]
  - OBESITY [None]
  - TYPE 2 DIABETES MELLITUS [None]
  - WEIGHT INCREASED [None]
